FAERS Safety Report 16912584 (Version 1)
Quarter: 2019Q4

REPORT INFORMATION
  Report Type: Spontaneous
  Country: BR (occurrence: BR)
  Receive Date: 20191014
  Receipt Date: 20191014
  Transmission Date: 20200122
  Serious: Yes (Other)
  Sender: FDA-Public Use
  Company Number: BR-GLAXOSMITHKLINE-BR2019181998

PATIENT
  Sex: Female

DRUGS (2)
  1. RELVAR ELLIPTA [Suspect]
     Active Substance: FLUTICASONE FUROATE\VILANTEROL TRIFENATATE
     Indication: ASTHMA
     Dosage: UNK, 200/25
     Dates: start: 20190903
  2. RELVAR ELLIPTA [Suspect]
     Active Substance: FLUTICASONE FUROATE\VILANTEROL TRIFENATATE
     Dosage: UNK, 100/25

REACTIONS (6)
  - Throat irritation [Unknown]
  - Headache [Unknown]
  - Sleep disorder due to a general medical condition [Unknown]
  - Asthmatic crisis [Unknown]
  - Cough [Not Recovered/Not Resolved]
  - Fatigue [Unknown]
